FAERS Safety Report 8394932-X (Version None)
Quarter: 2012Q2

REPORT INFORMATION
  Report Type: 
  Country: None (occurrence: None)
  Receive Date: 20120530
  Receipt Date: 20110912
  Transmission Date: 20120825
  Serious: No
  Sender: FDA-Public Use
  Company Number: US-GLAXOSMITHKLINE-A0944868A

PATIENT
  Age: 71 Year
  Sex: Female
  Weight: 72.2 kg

DRUGS (12)
  1. ZYRTEC [Concomitant]
  2. POTASSIUM CHLORIDE [Concomitant]
  3. PROTONIX [Concomitant]
  4. AMITRIPTYLINE HCL [Concomitant]
  5. ELMIRON [Concomitant]
  6. FLOLAN [Suspect]
     Indication: PULMONARY HYPERTENSION
     Route: 042
     Dates: start: 20110319
  7. LASIX [Concomitant]
  8. COUMADIN [Concomitant]
  9. ZETIA [Concomitant]
  10. DIPHENOXYLATE HCL + ATROPINE SULFATE [Concomitant]
  11. FERROUS SULFATE TAB [Concomitant]
  12. PROCARDIA XL [Concomitant]

REACTIONS (2)
  - CATHETER SITE PRURITUS [None]
  - DIARRHOEA [None]
